FAERS Safety Report 14727080 (Version 2)
Quarter: 2018Q2

REPORT INFORMATION
  Report Type: Spontaneous
  Country: GB (occurrence: GB)
  Receive Date: 20180406
  Receipt Date: 20180422
  Transmission Date: 20180711
  Serious: Yes (Other)
  Sender: FDA-Public Use
  Company Number: GB-APOTEX-2018AP009174

PATIENT
  Sex: Male

DRUGS (25)
  1. TOPIRAMATE. [Suspect]
     Active Substance: TOPIRAMATE
     Indication: SUNCT SYNDROME
     Dosage: 175 MG, UNK
     Route: 065
  2. TOPIRAMATE. [Suspect]
     Active Substance: TOPIRAMATE
     Indication: PROPHYLAXIS
  3. PREDNISOLONE. [Suspect]
     Active Substance: PREDNISOLONE
     Indication: SUNCT SYNDROME
     Dosage: UNK
     Route: 065
  4. SUMATRIPTAN. [Suspect]
     Active Substance: SUMATRIPTAN
     Indication: PROPHYLAXIS
  5. PREGABALIN. [Suspect]
     Active Substance: PREGABALIN
     Indication: SUNCT SYNDROME
     Dosage: 500 MG, UNK
     Route: 065
  6. MELATONIN [Suspect]
     Active Substance: MELATONIN
     Indication: PROPHYLAXIS
  7. LIDOCAINE. [Suspect]
     Active Substance: LIDOCAINE
     Indication: PROPHYLAXIS
     Dosage: 1-4 MG/MIN, UNK
     Route: 042
  8. LITHIUM. [Suspect]
     Active Substance: LITHIUM
     Indication: PROPHYLAXIS
  9. INDOMETHACIN                       /00003801/ [Suspect]
     Active Substance: INDOMETHACIN
     Indication: SUNCT SYNDROME
     Dosage: 150 MG, UNK
     Route: 065
  10. GABAPENTIN. [Suspect]
     Active Substance: GABAPENTIN
     Indication: PROPHYLAXIS
  11. LIDOCAINE. [Suspect]
     Active Substance: LIDOCAINE
     Indication: CONDITION AGGRAVATED
  12. LAMOTRIGINE. [Suspect]
     Active Substance: LAMOTRIGINE
     Indication: PROPHYLAXIS
  13. GABAPENTIN. [Suspect]
     Active Substance: GABAPENTIN
     Indication: SUNCT SYNDROME
     Dosage: 4500 MG, UNK
     Route: 065
  14. PREGABALIN. [Suspect]
     Active Substance: PREGABALIN
     Indication: PROPHYLAXIS
  15. LIDOCAINE. [Suspect]
     Active Substance: LIDOCAINE
     Indication: SUNCT SYNDROME
     Dosage: 5 %, Q.12H
     Route: 062
  16. LITHIUM. [Suspect]
     Active Substance: LITHIUM
     Indication: SUNCT SYNDROME
     Dosage: UNK
     Route: 065
  17. LAMOTRIGINE. [Suspect]
     Active Substance: LAMOTRIGINE
     Indication: SUNCT SYNDROME
     Dosage: 225 MG, UNK
     Route: 065
  18. CARBAMAZEPINE. [Suspect]
     Active Substance: CARBAMAZEPINE
     Indication: SUNCT SYNDROME
     Dosage: UNK
     Route: 065
  19. INDOMETHACIN                       /00003801/ [Suspect]
     Active Substance: INDOMETHACIN
     Indication: PROPHYLAXIS
  20. CARBAMAZEPINE. [Suspect]
     Active Substance: CARBAMAZEPINE
     Indication: PROPHYLAXIS
  21. MELATONIN [Suspect]
     Active Substance: MELATONIN
     Indication: SUNCT SYNDROME
     Dosage: 12 MG, UNK
     Route: 065
  22. AMITRIPTYLINE [Suspect]
     Active Substance: AMITRIPTYLINE
     Indication: SUNCT SYNDROME
     Dosage: UNK
     Route: 065
  23. AMITRIPTYLINE [Suspect]
     Active Substance: AMITRIPTYLINE
     Indication: PROPHYLAXIS
  24. PREDNISOLONE. [Suspect]
     Active Substance: PREDNISOLONE
     Indication: PROPHYLAXIS
  25. SUMATRIPTAN. [Suspect]
     Active Substance: SUMATRIPTAN
     Indication: SUNCT SYNDROME
     Dosage: 6 MG, PRN
     Route: 058

REACTIONS (6)
  - Drug ineffective [Unknown]
  - Weight decreased [Unknown]
  - Drug effect incomplete [Unknown]
  - Cognitive disorder [Unknown]
  - Confusional state [Unknown]
  - Nausea [Unknown]
